FAERS Safety Report 14801054 (Version 1)
Quarter: 2018Q2

REPORT INFORMATION
  Report Type: Spontaneous
  Country: US (occurrence: US)
  Receive Date: 20180424
  Receipt Date: 20180424
  Transmission Date: 20180711
  Serious: Yes (Other)
  Sender: FDA-Public Use
  Company Number: US-009507513-1804USA009477

PATIENT
  Sex: Male

DRUGS (4)
  1. SINGULAIR [Suspect]
     Active Substance: MONTELUKAST SODIUM
     Indication: ASTHMA
  2. SINGULAIR [Suspect]
     Active Substance: MONTELUKAST SODIUM
     Indication: SLEEP DISORDER
     Dosage: 5 MG, QD
     Route: 048
     Dates: start: 201803
  3. SINGULAIR [Suspect]
     Active Substance: MONTELUKAST SODIUM
     Indication: HYPERSENSITIVITY
     Dosage: 1 DF, ONCE
     Route: 048
     Dates: start: 201404, end: 201404
  4. SINGULAIR [Suspect]
     Active Substance: MONTELUKAST SODIUM
     Indication: SLEEP DISORDER

REACTIONS (12)
  - Infection [Not Recovered/Not Resolved]
  - Aphasia [Unknown]
  - Food allergy [Unknown]
  - Cardiac disorder [Unknown]
  - Adverse reaction [Not Recovered/Not Resolved]
  - Autism spectrum disorder [Unknown]
  - Product use in unapproved indication [Not Recovered/Not Resolved]
  - Dysphagia [Unknown]
  - Anaphylactoid reaction [Recovered/Resolved]
  - Pica [Unknown]
  - Decreased immune responsiveness [Unknown]
  - Hypersensitivity [Not Recovered/Not Resolved]

NARRATIVE: CASE EVENT DATE: 201404
